FAERS Safety Report 7001483-3 (Version None)
Quarter: 2010Q3

REPORT INFORMATION
  Report Type: 
  Country: None (occurrence: None)
  Receive Date: 20100920
  Receipt Date: 20100908
  Transmission Date: 20110219
  Serious: Yes (Hospitalization)
  Sender: FDA-Public Use
  Company Number: CN-ROCHE-726426

PATIENT
  Sex: Female
  Weight: 158 kg

DRUGS (5)
  1. BEVACIZUMAB [Suspect]
     Indication: BREAST CANCER
     Dosage: FORM: VIALS, TOTAL DOSE: 1000 MG, LAST DOSE PRIOR TO SAE: 19 AUGUST 2010
     Route: 042
     Dates: start: 20100729
  2. TRASTUZUMAB [Suspect]
     Indication: BREAST CANCER
     Dosage: FORM:VIALS, LOADING DOSE
     Route: 042
     Dates: start: 20100729
  3. TRASTUZUMAB [Suspect]
     Dosage: FORM:VIALS, TOTAL DOSE:420 MG, DATE OF LAST DOSE PRIOR TO SAE: 19 AUGUST 2010
     Route: 042
  4. CARBOPLATIN [Suspect]
     Indication: BREAST CANCER
     Dosage: FORM:VIALS,DOSE LEVEL: 6 AUC, DATE OF LAST DOSE PRIOR TO SAE: 19 AUGUST 2010
     Route: 042
     Dates: start: 20100729
  5. DOCETAXEL [Suspect]
     Indication: BREAST CANCER
     Dosage: FORM:VIALS, TOTAL DOSE:128 MG, DATE OF LAST DOSE PRIOR TO SAE: 19 AUGUST 2010
     Route: 042
     Dates: start: 20100729

REACTIONS (1)
  - URINARY RETENTION [None]
